FAERS Safety Report 7864924-5 (Version None)
Quarter: 2011Q4

REPORT INFORMATION
  Report Type: 
  Country: None (occurrence: None)
  Receive Date: 20111028
  Receipt Date: 20100920
  Transmission Date: 20120403
  Serious: No
  Sender: FDA-Public Use
  Company Number: US-GLAXOSMITHKLINE-A0882079A

PATIENT
  Age: 67 Year
  Sex: Female

DRUGS (2)
  1. ADVAIR DISKUS 100/50 [Suspect]
     Indication: CHRONIC OBSTRUCTIVE PULMONARY DISEASE
     Dosage: 1PUFF TWICE PER DAY
     Route: 055
     Dates: start: 20100906
  2. SPIRIVA [Concomitant]

REACTIONS (10)
  - ABDOMINAL PAIN UPPER [None]
  - ARTHRALGIA [None]
  - SENSORY DISTURBANCE [None]
  - FAECES DISCOLOURED [None]
  - JOINT SWELLING [None]
  - DIARRHOEA [None]
  - EYE PRURITUS [None]
  - MUSCULOSKELETAL PAIN [None]
  - PARAESTHESIA [None]
  - WEIGHT INCREASED [None]
